FAERS Safety Report 8170756-3 (Version None)
Quarter: 2012Q1

REPORT INFORMATION
  Report Type: 
  Country: None (occurrence: None)
  Receive Date: 20120104
  Receipt Date: 20111116
  Transmission Date: 20120608
  Serious: No
  Sender: FDA-Public Use
  Company Number: 2011HGS-002823

PATIENT
  Age: 57 Year
  Sex: Female
  Weight: 67.1324 kg

DRUGS (12)
  1. TRIAMTERNE/HYDROCHLORATHIAZIDE (DYAZIDE) (HYDROCHLOROTHIAZIDE, TRIAMTE [Concomitant]
  2. PROZAC [Concomitant]
  3. VITAMIN D (ERGOCALIFEROL) [Concomitant]
  4. ADDERALL (OBETROL) (DEXAMFETAMINE SULFATE, AMFETAMINE SULFATE, DEXAMFE [Concomitant]
  5. CALCIUM CARBONATE [Concomitant]
  6. BENLYSTA [Suspect]
     Indication: SYSTEMIC LUPUS ERYTHEMATOSUS
     Dosage: 1 IN 28 D, INTRAVENOUS DRIP
     Route: 041
     Dates: start: 20110912
  7. PLAQUENIL [Concomitant]
  8. OXYCONTIN [Concomitant]
  9. METHOTREXATE [Concomitant]
  10. ZOLEDRONIC ACID [Concomitant]
  11. PREDNISONE TAB [Concomitant]
  12. FOLIC ACID [Concomitant]

REACTIONS (2)
  - CONTUSION [None]
  - DRUG INEFFECTIVE [None]
